FAERS Safety Report 8533653-7 (Version None)
Quarter: 2012Q3

REPORT INFORMATION
  Report Type: 
  Country: None (occurrence: None)
  Receive Date: 20120717
  Receipt Date: 20120717
  Transmission Date: 20120928
  Serious: Yes (Other)
  Sender: FDA-Public Use
  Company Number: None

PATIENT
  Age: 86 Year
  Sex: Female
  Weight: 63 kg

DRUGS (12)
  1. MEMANTINE HCL [Concomitant]
  2. DONEPEZIL HCL [Concomitant]
  3. FLUOXETINE HCL [Concomitant]
  4. ATORVASTATIN [Concomitant]
  5. MORPHINE [Suspect]
     Indication: PAIN
     Dosage: 2 MG ONCE IV BOLUS
     Route: 040
     Dates: start: 20111208, end: 20111208
  6. ACETAMINOPHEN [Concomitant]
  7. POTASSIUM CHLORIDE [Concomitant]
  8. WARFARIN SODIUM [Concomitant]
  9. ARIPIPRAZOLE [Concomitant]
  10. LISINOPRIL AND HYDROCHLOROTHIAZIDE [Concomitant]
  11. CHOLECALCIFEROL [Concomitant]
  12. MILK OF MAGNESIA TAB [Concomitant]

REACTIONS (4)
  - HYPOTENSION [None]
  - LETHARGY [None]
  - INTERNATIONAL NORMALISED RATIO INCREASED [None]
  - BRADYCARDIA [None]
